FAERS Safety Report 8447864-2 (Version None)
Quarter: 2012Q2

REPORT INFORMATION
  Report Type: 
  Country: None (occurrence: None)
  Receive Date: 20120612
  Receipt Date: 20120530
  Transmission Date: 20120825
  Serious: Yes (Hospitalization, Other)
  Sender: FDA-Public Use
  Company Number: 2012SP020235

PATIENT
  Age: 21 Year
  Sex: Female
  Weight: 55 kg

DRUGS (3)
  1. MICRONOR [Concomitant]
  2. SUMATRIPTAN [Concomitant]
  3. DESOGESTREL AND ETHINYL ESTRADIOL [Suspect]
     Indication: CONTRACEPTION
     Dosage: ;QD;PO
     Route: 048
     Dates: start: 20061016, end: 20091109

REACTIONS (5)
  - MIGRAINE [None]
  - OROPHARYNGEAL PAIN [None]
  - BLINDNESS [None]
  - DRUG HYPERSENSITIVITY [None]
  - PARAESTHESIA [None]
